FAERS Safety Report 8317359-5 (Version None)
Quarter: 2012Q2

REPORT INFORMATION
  Report Type: 
  Country: None (occurrence: None)
  Receive Date: 20120427
  Receipt Date: 20120417
  Transmission Date: 20120825
  Serious: Yes (Life-Threatening, Hospitalization)
  Sender: FDA-Public Use
  Company Number: JP-ELI_LILLY_AND_COMPANY-JP201203003703

PATIENT
  Sex: Female
  Weight: 44 kg

DRUGS (13)
  1. FORTEO [Suspect]
     Indication: OSTEOPOROSIS
     Dosage: 20 UG, QD
     Route: 058
     Dates: start: 20120209, end: 20120218
  2. MUCOSTA [Concomitant]
     Dosage: 100 MG, BID
     Route: 048
  3. FORSENID [Concomitant]
     Dosage: 12 MG, QD
     Route: 048
  4. ALOSENN                            /00476901/ [Concomitant]
     Dosage: UNK, QD
     Route: 048
  5. OSTELUC [Concomitant]
     Dosage: 200 MG, BID
     Route: 048
  6. NEO-MERCAZOLE TAB [Concomitant]
     Dosage: 15 MG, QD
     Route: 048
  7. LENDORMIN [Concomitant]
     Dosage: 0.188 MG, QD
     Route: 048
  8. FLUOROMETHOLONE [Concomitant]
     Dosage: UNK, TID
     Route: 047
  9. MAGMITT [Concomitant]
     Dosage: 330 MG, TID
     Route: 048
  10. KETOPROFEN [Concomitant]
  11. LEVOTHYROXINE SODIUM [Concomitant]
     Dosage: 25 UG, QD
     Route: 048
  12. TARIVID OTIC SOLUTION [Concomitant]
     Dosage: UNK UNK, TID
     Route: 047
  13. ELCITONIN [Concomitant]
     Dosage: UNK
     Route: 030
     Dates: start: 20120203

REACTIONS (1)
  - PUTAMEN HAEMORRHAGE [None]
